FAERS Safety Report 6397424-2 (Version None)
Quarter: 2009Q4

REPORT INFORMATION
  Report Type: 
  Country: None (occurrence: None)
  Receive Date: 20091012
  Receipt Date: 20091001
  Transmission Date: 20100525
  Serious: Yes (Other)
  Sender: FDA-Public Use
  Company Number: PHEH2009US12875

PATIENT
  Sex: Male
  Weight: 117.91 kg

DRUGS (3)
  1. TEKTURNA HCT [Suspect]
     Dosage: 300MGALIS/25MGHCT, UNK
  2. COREG [Concomitant]
  3. NORVASC [Concomitant]

REACTIONS (1)
  - BLOOD CREATINE PHOSPHOKINASE INCREASED [None]
